FAERS Safety Report 10330330 (Version 1)
Quarter: 2014Q3

REPORT INFORMATION
  Report Type: Spontaneous
  Country: GB (occurrence: GB)
  Receive Date: 20140722
  Receipt Date: 20140722
  Transmission Date: 20150326
  Serious: Yes (Disabling)
  Sender: FDA-Public Use
  Company Number: GB-ACCORD-024863

PATIENT
  Age: 84 Year
  Sex: Male
  Weight: 70 kg

DRUGS (19)
  1. ADCAL [Concomitant]
     Dates: start: 20140212
  2. HYPROMELLOSE/HYPROMELLOSE PHTHALATE [Concomitant]
     Dates: start: 20140212
  3. POVIDONE-IODINE. [Concomitant]
     Active Substance: POVIDONE-IODINE
     Dates: start: 20140602
  4. LANSOPRAZOLE. [Concomitant]
     Active Substance: LANSOPRAZOLE
     Dates: start: 20140212
  5. ALENDRONATE SODIUM/ALENDRONIC ACID [Concomitant]
     Dates: start: 20140212
  6. BUDESONIDE. [Concomitant]
     Active Substance: BUDESONIDE
     Dates: start: 20140408
  7. SALMETEROL [Concomitant]
     Active Substance: SALMETEROL
     Dates: start: 20140212
  8. ISOSORBIDE [Concomitant]
     Active Substance: ISOSORBIDE
     Dates: start: 20140212
  9. WARFARIN [Concomitant]
     Active Substance: WARFARIN
     Dates: start: 20140212
  10. LISINOPRIL. [Concomitant]
     Active Substance: LISINOPRIL
     Dates: start: 20140212
  11. HYDROXOCOBALAMIN/HYDROXOCOBALAMIN ACETATE/HYDROXOCOBALAMIN HYDROCHLORIDE [Concomitant]
     Dates: start: 20140224
  12. DILTIAZEM [Concomitant]
     Active Substance: DILTIAZEM
  13. SIMVASTATIN. [Concomitant]
     Active Substance: SIMVASTATIN
     Dates: start: 20140212
  14. CETIRIZINE [Concomitant]
     Active Substance: CETIRIZINE HYDROCHLORIDE
     Dates: start: 20140212
  15. CLOPIDOGREL [Suspect]
     Active Substance: CLOPIDOGREL BISULFATE
     Indication: PRODUCT USED FOR UNKNOWN INDICATION
  16. GLYCERYL TRINITRATE [Concomitant]
     Active Substance: NITROGLYCERIN
     Dates: start: 20140618
  17. VENTOLIN [Concomitant]
     Active Substance: ALBUTEROL SULFATE
     Dates: start: 20140212
  18. LACTULOSE. [Concomitant]
     Active Substance: LACTULOSE
     Dates: start: 20140411, end: 20140622
  19. FOLIC ACID. [Concomitant]
     Active Substance: FOLIC ACID
     Dates: start: 20140212

REACTIONS (4)
  - Feeling abnormal [Recovering/Resolving]
  - Pruritus [Recovering/Resolving]
  - Blood pressure decreased [Recovering/Resolving]
  - Confusional state [Recovering/Resolving]

NARRATIVE: CASE EVENT DATE: 20140618
